FAERS Safety Report 12298118 (Version 2)
Quarter: 2016Q2

REPORT INFORMATION
  Report Type: Spontaneous
  Country: FI (occurrence: FI)
  Receive Date: 20160423
  Receipt Date: 20160608
  Transmission Date: 20160815
  Serious: Yes (Other)
  Sender: FDA-Public Use
  Company Number: FI-ALLERGAN-1654479US

PATIENT
  Sex: Female

DRUGS (2)
  1. ALPHAGAN P [Suspect]
     Active Substance: BRIMONIDINE TARTRATE
     Indication: GLAUCOMA
     Dosage: UNK
     Route: 047
  2. ALPHAGAN P [Suspect]
     Active Substance: BRIMONIDINE TARTRATE
     Dosage: UNK
     Route: 047
     Dates: start: 2015

REACTIONS (15)
  - Tooth extraction [Unknown]
  - Head discomfort [Unknown]
  - Headache [Unknown]
  - Photophobia [Recovered/Resolved]
  - Somnolence [Unknown]
  - Eye pain [Unknown]
  - Tongue oedema [Unknown]
  - Eyelid disorder [Recovering/Resolving]
  - Eyelids pruritus [Recovering/Resolving]
  - Eye irritation [Unknown]
  - Sudden onset of sleep [Unknown]
  - Erythema of eyelid [Recovering/Resolving]
  - Eyelid oedema [Recovering/Resolving]
  - Herpes ophthalmic [Unknown]
  - Fatigue [Unknown]
